FAERS Safety Report 16206120 (Version 1)
Quarter: 2019Q2

REPORT INFORMATION
  Report Type: Spontaneous
  Country: US (occurrence: US)
  Receive Date: 20190312
  Receipt Date: 20190312
  Transmission Date: 20190711
  Serious: Yes (Disabling)
  Sender: FDA-Public Use
  Company Number: None

PATIENT
  Age: 78 Year
  Sex: Male
  Weight: 74.84 kg

DRUGS (6)
  1. TIMOLOL. [Concomitant]
     Active Substance: TIMOLOL
  2. AREDS 2 [Concomitant]
     Active Substance: MINERALS\VITAMINS
  3. LOSARTAN 50 MG TAB GENERIC FOR COZAR MFG TORENT [Suspect]
     Active Substance: LOSARTAN POTASSIUM
     Indication: HYPERTENSION
     Dosage: ?          QUANTITY:1 DF DOSAGE FORM;?
     Route: 048
     Dates: start: 2011
  4. GLIPIZIDE. [Concomitant]
     Active Substance: GLIPIZIDE
  5. ATORVASTATIN [Concomitant]
     Active Substance: ATORVASTATIN
  6. HYDROCHLOROTHIAZIDE. [Concomitant]
     Active Substance: HYDROCHLOROTHIAZIDE

REACTIONS (7)
  - Carcinogenicity [None]
  - Fatigue [None]
  - Recalled product [None]
  - Product substitution issue [None]
  - Respiratory disorder [None]
  - Dizziness [None]
  - Product contamination chemical [None]

NARRATIVE: CASE EVENT DATE: 20190214
